FAERS Safety Report 9258086 (Version 1)
Quarter: 2013Q1

REPORT INFORMATION
  Report Type: Spontaneous
  Country: US (occurrence: None)
  Receive Date: 20121212
  Receipt Date: 20121212
  Transmission Date: 20140127
  Serious: No
  Sender: FDA-Public Use
  Company Number: 1209USA004210

PATIENT
  Sex: Male

DRUGS (1)
  1. VICTRELIS [Suspect]
     Indication: CHRONIC HEPATITIS C
     Route: 048

REACTIONS (3)
  - Haemorrhoids [None]
  - Faeces discoloured [None]
  - Proctalgia [None]
